FAERS Safety Report 17156847 (Version 1)
Quarter: 2019Q4

REPORT INFORMATION
  Report Type: Spontaneous
  Country: SE (occurrence: SE)
  Receive Date: 20191216
  Receipt Date: 20191216
  Transmission Date: 20200122
  Serious: Yes (Hospitalization, Other)
  Sender: FDA-Public Use
  Company Number: SE-AUROBINDO-AUR-APL-2019-105044

PATIENT
  Sex: Male

DRUGS (2)
  1. NAPROXEN. [Suspect]
     Active Substance: NAPROXEN
     Indication: PRODUCT USED FOR UNKNOWN INDICATION
     Dosage: 4000 MILLIGRAM (8 UNITS OF 500 MG)
     Route: 065
     Dates: start: 20180503, end: 20180503
  2. PROPAVAN [Suspect]
     Active Substance: PROPIOMAZINE
     Indication: PRODUCT USED FOR UNKNOWN INDICATION
     Dosage: 400 MILLIGRAM (16 TABLETS OF 25 MG EACH)
     Route: 048
     Dates: start: 20180503, end: 20180503

REACTIONS (3)
  - Intentional self-injury [Unknown]
  - Somnolence [Unknown]
  - Intentional overdose [Unknown]

NARRATIVE: CASE EVENT DATE: 20180503
